FAERS Safety Report 8229493-9 (Version None)
Quarter: 2012Q1

REPORT INFORMATION
  Report Type: 
  Country: None (occurrence: None)
  Receive Date: 20120322
  Receipt Date: 20120313
  Transmission Date: 20120608
  Serious: Yes (Other)
  Sender: FDA-Public Use
  Company Number: US-MPIJNJ-2012-01859

PATIENT

DRUGS (2)
  1. VELCADE [Suspect]
     Indication: PANCREATIC CARCINOMA
     Dosage: 1.3 MG/M2, CYCLIC
     Route: 040
  2. PANOBINOSTAT [Suspect]
     Indication: PANCREATIC CARCINOMA
     Dosage: 20 MG, CYCLIC
     Route: 048

REACTIONS (3)
  - ELECTROCARDIOGRAM QT PROLONGED [None]
  - HYPOKALAEMIA [None]
  - HYPOMAGNESAEMIA [None]
